FAERS Safety Report 10375011 (Version 2)
Quarter: 2014Q3

REPORT INFORMATION
  Report Type: Spontaneous
  Country: US (occurrence: US)
  Receive Date: 20140811
  Receipt Date: 20140814
  Transmission Date: 20150326
  Serious: Yes (Hospitalization)
  Sender: FDA-Public Use
  Company Number: US-SA-2014SA105005

PATIENT
  Age: 64 Year
  Sex: Female
  Weight: 76.5 kg

DRUGS (1)
  1. THYMOGLOBULIN [Suspect]
     Active Substance: LAPINE T-LYMPHOCYTE IMMUNE GLOBULIN
     Indication: KIDNEY TRANSPLANT REJECTION
     Route: 065
     Dates: start: 20140728

REACTIONS (2)
  - No therapeutic response [Unknown]
  - Hospitalisation [Unknown]
